FAERS Safety Report 8200716-5 (Version None)
Quarter: 2012Q1

REPORT INFORMATION
  Report Type: 
  Country: None (occurrence: None)
  Receive Date: 20120312
  Receipt Date: 20120306
  Transmission Date: 20120608
  Serious: Yes (Death, Other)
  Sender: FDA-Public Use
  Company Number: US-ASTELLAS-2011US006093

PATIENT
  Sex: Female

DRUGS (2)
  1. ERLOTINIB HYDROCHLORIDE [Suspect]
     Indication: LUNG ADENOCARCINOMA
     Dosage: 100 MG, UID/QD
     Route: 048
     Dates: start: 20110909, end: 20110917
  2. ERLOTINIB HYDROCHLORIDE [Suspect]
     Dosage: 100 MG, UID/QD
     Route: 048
     Dates: end: 20120122

REACTIONS (7)
  - RASH [None]
  - SOMNOLENCE [None]
  - MALIGNANT PLEURAL EFFUSION [None]
  - INCORRECT DOSE ADMINISTERED [None]
  - DIARRHOEA [None]
  - DIZZINESS [None]
  - NEOPLASM MALIGNANT [None]
